FAERS Safety Report 18982142 (Version 1)
Quarter: 2021Q1

REPORT INFORMATION
  Report Type: Report from Study
  Country: US (occurrence: US)
  Receive Date: 20210308
  Receipt Date: 20210308
  Transmission Date: 20210420
  Serious: Yes (Other)
  Sender: FDA-Public Use
  Company Number: US-TEVA-2021-US-1886812

PATIENT
  Sex: Male

DRUGS (4)
  1. AJOVY [Suspect]
     Active Substance: FREMANEZUMAB-VFRM
     Indication: MIGRAINE
     Dosage: TAKING FOR TWO YEARS MAYBE LONGER
     Route: 065
  2. IMITREX [Concomitant]
     Active Substance: SUMATRIPTAN SUCCINATE
  3. AJOVY [Suspect]
     Active Substance: FREMANEZUMAB-VFRM
  4. IBUPROFEN. [Concomitant]
     Active Substance: IBUPROFEN

REACTIONS (6)
  - Injection site pain [Unknown]
  - Swelling [Unknown]
  - Syringe issue [Unknown]
  - Injection site discomfort [Unknown]
  - Loss of consciousness [Unknown]
  - Fear of injection [Unknown]
